FAERS Safety Report 7273117-4 (Version None)
Quarter: 2011Q1

REPORT INFORMATION
  Report Type: 
  Country: None (occurrence: None)
  Receive Date: 20110203
  Receipt Date: 20110128
  Transmission Date: 20110831
  Serious: Yes (Other)
  Sender: FDA-Public Use
  Company Number: US-SANOFI-AVENTIS-2010SA078103

PATIENT
  Age: 52 Year
  Sex: Male

DRUGS (24)
  1. PROTONIX [Concomitant]
  2. MYFORTIC [Concomitant]
  3. PROSCAR [Concomitant]
  4. PRINIVIL [Concomitant]
  5. IRON [Concomitant]
  6. LIPITOR [Concomitant]
  7. LOPID [Concomitant]
  8. SIROLIMUS [Concomitant]
  9. SULFAMETHOXAZOLE AND TRIMETHOPRIM [Concomitant]
     Route: 048
  10. PAMELOR [Concomitant]
  11. INDERAL LA [Concomitant]
  12. RITALIN [Concomitant]
  13. ATIVAN [Concomitant]
  14. COLACE [Concomitant]
  15. ASPIRIN [Concomitant]
  16. NEORAL [Concomitant]
  17. DULCOLAX [Concomitant]
     Route: 048
  18. SOLOSTAR [Suspect]
     Indication: TYPE 1 DIABETES MELLITUS
     Dates: start: 20100201
  19. NEORAL [Concomitant]
  20. HUMALOG [Concomitant]
     Indication: BLOOD GLUCOSE
     Dosage: SLIDING SCALE
  21. LANTUS [Suspect]
     Indication: TYPE 1 DIABETES MELLITUS
     Dosage: DOSE:58 UNIT(S)
     Route: 058
     Dates: start: 20100201
  22. SYNTHROID [Concomitant]
  23. TUMS [Concomitant]
  24. TYLENOL-500 [Concomitant]

REACTIONS (2)
  - HYPOGLYCAEMIA [None]
  - PRODUCT QUALITY ISSUE [None]
